FAERS Safety Report 5226905-X (Version None)
Quarter: 2007Q1

REPORT INFORMATION
  Report Type: 
  Country: None (occurrence: None)
  Receive Date: 20070130
  Receipt Date: 20070119
  Transmission Date: 20070707
  Serious: Yes (Other)
  Sender: FDA-Public Use
  Company Number: GXKR2007IN00973

PATIENT
  Age: 18 Year
  Sex: Female

DRUGS (1)
  1. CLOZAPINE [Suspect]
     Indication: DRUG USE FOR UNKNOWN INDICATION
     Dosage: 25 MG-300 MG/DAY

REACTIONS (4)
  - DRUG WITHDRAWAL SYNDROME [None]
  - EYE ROLLING [None]
  - OCULOGYRATION [None]
  - TREATMENT NONCOMPLIANCE [None]
